FAERS Safety Report 17608862 (Version 1)
Quarter: 2020Q2

REPORT INFORMATION
  Report Type: Report from Study
  Country: ES (occurrence: ES)
  Receive Date: 20200401
  Receipt Date: 20200401
  Transmission Date: 20200713
  Serious: Yes (Hospitalization)
  Sender: FDA-Public Use
  Company Number: ES-TEVA-2020-ES-1215254

PATIENT
  Age: 48 Year
  Sex: Male

DRUGS (6)
  1. PREDNISONA (886A) [Interacting]
     Active Substance: PREDNISONE
     Indication: PYODERMA GANGRENOSUM
     Dosage: 40 MG
     Route: 048
     Dates: start: 200612
  2. INNOHEP 18.000 UI ANTI-XA/0,9 ML SOLUCION INYECTABLE EN JERINGAS PRECA [Concomitant]
     Route: 058
     Dates: start: 20190510
  3. PENTOXIFILINA (1088A) [Concomitant]
     Dosage: 1.2 G
     Route: 048
     Dates: start: 201908, end: 20191008
  4. ELONTRIL 300 MG COMPRIMIDOS DE LIBERACION MODIFICADA , 30 COMPRIMIDOS [Concomitant]
     Route: 048
     Dates: start: 20190228, end: 20191008
  5. KINERET [Interacting]
     Active Substance: ANAKINRA
     Indication: PYODERMA GANGRENOSUM
     Route: 058
     Dates: start: 20190502, end: 20191003
  6. CICLOSPORINA (406A) [Suspect]
     Active Substance: CYCLOSPORINE
     Indication: PYODERMA GANGRENOSUM
     Dosage: 200 MG
     Route: 048
     Dates: start: 201907, end: 20191003

REACTIONS (2)
  - Drug interaction [Unknown]
  - Campylobacter gastroenteritis [Recovered/Resolved]

NARRATIVE: CASE EVENT DATE: 20190918
